FAERS Safety Report 25491238 (Version 1)
Quarter: 2025Q2

REPORT INFORMATION
  Report Type: Spontaneous
  Country: US (occurrence: US)
  Receive Date: 20250629
  Receipt Date: 20250629
  Transmission Date: 20250717
  Serious: Yes (Hospitalization, Other)
  Sender: UPSHER SMITH LABORATORIES
  Company Number: US-UPSHER-SMITH LABORATORIES, LLC-20241100241

PATIENT

DRUGS (3)
  1. VIGADRONE [Suspect]
     Active Substance: VIGABATRIN
     Indication: Tuberous sclerosis complex
     Route: 048
     Dates: start: 20240913
  2. VIGADRONE [Suspect]
     Active Substance: VIGABATRIN
     Route: 048
  3. VIGADRONE [Suspect]
     Active Substance: VIGABATRIN
     Route: 048

REACTIONS (3)
  - Seizure [Unknown]
  - Infantile spitting up [Unknown]
  - Weight increased [Unknown]

NARRATIVE: CASE EVENT DATE: 20240101
